FAERS Safety Report 7589405-8 (Version None)
Quarter: 2011Q3

REPORT INFORMATION
  Report Type: 
  Country: None (occurrence: None)
  Receive Date: 20110705
  Receipt Date: 20110630
  Transmission Date: 20111222
  Serious: Yes (Life-Threatening, Disabling)
  Sender: FDA-Public Use
  Company Number: AU-B.I. PHARMACEUTICALS,INC./RIDGEFIELD-2011-AU-00392AU

PATIENT
  Sex: Female

DRUGS (2)
  1. CALCIUM CARBONATE [Concomitant]
  2. PRADAXA [Suspect]
     Indication: ATRIAL FIBRILLATION
     Dosage: 220 MG
     Dates: start: 20110622, end: 20110623

REACTIONS (4)
  - MONOPLEGIA [None]
  - PARAESTHESIA [None]
  - HEMIPARESIS [None]
  - MUSCULAR WEAKNESS [None]
